FAERS Safety Report 6462378-7 (Version None)
Quarter: 2009Q4

REPORT INFORMATION
  Report Type: 
  Country: None (occurrence: None)
  Receive Date: 20091130
  Receipt Date: 20091030
  Transmission Date: 20100525
  Serious: No
  Sender: FDA-Public Use
  Company Number: US-BAYER-200938121NA

PATIENT
  Age: 32 Year
  Sex: Female
  Weight: 58 kg

DRUGS (2)
  1. MIRENA [Suspect]
     Indication: CONTRACEPTION
     Dosage: CONTINUOUS
     Route: 015
  2. MUSCLE RELAXANTS [Concomitant]

REACTIONS (5)
  - ABDOMINAL PAIN [None]
  - AMENORRHOEA [None]
  - FUNGAL INFECTION [None]
  - VAGINAL DISCHARGE [None]
  - VULVOVAGINAL PAIN [None]
